FAERS Safety Report 20125782 (Version 5)
Quarter: 2023Q2

REPORT INFORMATION
  Report Type: Report from Study
  Country: DE (occurrence: DE)
  Receive Date: 20211129
  Receipt Date: 20230515
  Transmission Date: 20230722
  Serious: Yes (Other)
  Sender: FDA-Public Use
  Company Number: DE-002147023-NVSC2021DE213189

PATIENT
  Sex: Female
  Weight: 70 kg

DRUGS (7)
  1. LETROZOLE [Suspect]
     Active Substance: LETROZOLE
     Indication: Hormone receptor positive HER2 negative breast cancer
     Dosage: 2.5 MG, QD (2.5 MG, QD)
     Route: 048
     Dates: start: 20191101, end: 20200413
  2. LETROZOLE [Suspect]
     Active Substance: LETROZOLE
     Dosage: 2.5 MILLIGRAM, QD (2.5 MG, QD)
     Route: 048
     Dates: start: 20201130
  3. KISQALI [Suspect]
     Active Substance: RIBOCICLIB
     Indication: Hormone receptor positive HER2 negative breast cancer
     Dosage: 600MG,QD(SCHEME 21D INTAKE,7D PAUSE)
     Route: 048
     Dates: start: 20201130, end: 20210321
  4. KISQALI [Suspect]
     Active Substance: RIBOCICLIB
     Dosage: 600MG,QD(SCHEME 21D INTAKE,7D PAUSE)
     Route: 048
     Dates: start: 20210323, end: 20210614
  5. KISQALI [Suspect]
     Active Substance: RIBOCICLIB
     Dosage: 600MG,QD(SCHEME 21D INTAKE,7D PAUSE)
     Route: 048
     Dates: start: 20210621, end: 20220710
  6. KISQALI [Suspect]
     Active Substance: RIBOCICLIB
     Dosage: 600MG,QD(SCHEME 21D INTAKE,7D PAUSE)
     Route: 048
     Dates: start: 20220727
  7. KISQALI [Suspect]
     Active Substance: RIBOCICLIB
     Dosage: 400 MG, QD
     Route: 048
     Dates: start: 20191112, end: 20200413

REACTIONS (9)
  - Neutropenia [Recovered/Resolved]
  - Mucosal inflammation [Recovered/Resolved]
  - Fungal infection [Recovered/Resolved]
  - Back pain [Unknown]
  - Dry skin [Recovered/Resolved]
  - Fatigue [Not Recovered/Not Resolved]
  - Constipation [Recovered/Resolved]
  - Chest pain [Not Recovered/Not Resolved]
  - Nausea [Recovered/Resolved]

NARRATIVE: CASE EVENT DATE: 20201228
